FAERS Safety Report 6496938-4 (Version None)
Quarter: 2009Q4

REPORT INFORMATION
  Report Type: 
  Country: None (occurrence: None)
  Receive Date: 20091215
  Receipt Date: 20091006
  Transmission Date: 20100525
  Serious: No
  Sender: FDA-Public Use
  Company Number: A0709716A

PATIENT
  Age: 80 Year
  Sex: Male

DRUGS (2)
  1. AVODART [Suspect]
     Indication: DRUG USE FOR UNKNOWN INDICATION
     Route: 065
  2. HYTRIN [Concomitant]

REACTIONS (2)
  - DRUG INEFFECTIVE [None]
  - DYSPHONIA [None]
